FAERS Safety Report 10508806 (Version 4)
Quarter: 2016Q4

REPORT INFORMATION
  Report Type: Report from Study
  Country: TW (occurrence: TW)
  Receive Date: 20141009
  Receipt Date: 20161215
  Transmission Date: 20170206
  Serious: Yes (Hospitalization, Other)
  Sender: FDA-Public Use
  Company Number: TW-GLAXOSMITHKLINE-TW2014002703

PATIENT
  Age: 51 Year
  Sex: Female
  Weight: 47 kg

DRUGS (25)
  1. MYFORTIC [Suspect]
     Active Substance: MYCOPHENOLATE SODIUM
     Indication: SYSTEMIC LUPUS ERYTHEMATOSUS
     Dosage: 360 MG, BID
     Route: 048
     Dates: start: 20140614, end: 20140809
  2. METISONE [Concomitant]
     Indication: SYSTEMIC LUPUS ERYTHEMATOSUS
     Dosage: 12 MG, QD
     Route: 048
     Dates: start: 20140807, end: 20140809
  3. NOVONORM [Concomitant]
     Active Substance: REPAGLINIDE
     Indication: DIABETES MELLITUS
     Dosage: 1 MG, BID
     Route: 048
     Dates: start: 20140806, end: 20140809
  4. ALLEGRA [Concomitant]
     Active Substance: FEXOFENADINE HYDROCHLORIDE
     Dosage: 60 MG, QD
     Route: 048
     Dates: start: 20140820, end: 20140822
  5. CEFUROXIME. [Concomitant]
     Active Substance: CEFUROXIME
     Dosage: 750 MG, TID
     Route: 042
     Dates: start: 20140807, end: 20140808
  6. SENOKOT [Concomitant]
     Active Substance: SENNOSIDES
     Indication: CELLULITIS
     Dosage: 15 MG, 1D
     Route: 048
     Dates: start: 20140806, end: 20140809
  7. FEBURIC FC [Concomitant]
     Indication: CELLULITIS
     Dosage: 80 MG, QD
     Route: 048
     Dates: start: 20140806, end: 20140809
  8. PREDNISOLONE. [Concomitant]
     Active Substance: PREDNISOLONE
     Indication: SYSTEMIC LUPUS ERYTHEMATOSUS
     Dosage: 15 MG, QD
     Route: 048
     Dates: start: 20140807, end: 20140809
  9. ALLEGRA [Concomitant]
     Active Substance: FEXOFENADINE HYDROCHLORIDE
     Dosage: 60 MG, SINGLE
     Route: 048
     Dates: start: 20140820, end: 20140821
  10. NOVONORM [Concomitant]
     Active Substance: REPAGLINIDE
     Indication: DIABETES MELLITUS
  11. METFORMIN [Concomitant]
     Active Substance: METFORMIN HYDROCHLORIDE
     Indication: DIABETES MELLITUS
     Dosage: 500 MG, QD
     Route: 048
     Dates: start: 20140806, end: 20140810
  12. ENDOXAN [Suspect]
     Active Substance: CYCLOPHOSPHAMIDE
     Indication: SYSTEMIC LUPUS ERYTHEMATOSUS
     Route: 048
     Dates: start: 20140807, end: 20140809
  13. FLUMARIN (FLUCONAZOLE) [Concomitant]
     Indication: CELLULITIS
     Route: 042
     Dates: start: 20140807, end: 20140808
  14. CEFUROXIME. [Concomitant]
     Active Substance: CEFUROXIME
     Indication: CELLULITIS
     Dosage: 250 MG, BID
     Route: 048
     Dates: start: 20140820, end: 20140822
  15. FOLIC ACID. [Concomitant]
     Active Substance: FOLIC ACID
     Indication: SYSTEMIC LUPUS ERYTHEMATOSUS
     Dosage: 5 MG, QD
     Route: 048
     Dates: start: 20140807, end: 20140809
  16. TAITA NO.3 [Concomitant]
     Indication: CELLULITIS
     Dosage: 500 ML, SINGLE
     Route: 042
     Dates: start: 20140806, end: 20140807
  17. UTRACET [Concomitant]
     Indication: CELLULITIS
     Dosage: 1 UNK, QID
     Route: 048
     Dates: start: 20140806, end: 20140808
  18. THYROXINE [Concomitant]
     Active Substance: LEVOTHYROXINE
     Indication: HYPOTHYROIDISM
     Dosage: 100 ?G, QD
     Route: 048
     Dates: start: 20140806, end: 20140809
  19. NINCORT ORAL GEL [Concomitant]
     Indication: CELLULITIS
     Dosage: 1 UNK, BID
     Route: 061
     Dates: start: 20140809, end: 20140823
  20. BELIMUMAB [Suspect]
     Active Substance: BELIMUMAB
     Indication: SYSTEMIC LUPUS ERYTHEMATOSUS
     Dosage: UNK, CYC
     Route: 042
     Dates: start: 20131001, end: 20140708
  21. CEPHALEXIN. [Concomitant]
     Active Substance: CEPHALEXIN
     Indication: CELLULITIS
     Dosage: 500 MG, BID
     Route: 048
     Dates: start: 20140808, end: 20140816
  22. RADI-K [Concomitant]
     Indication: CELLULITIS
     Dosage: 595 MG, TID
     Route: 048
     Dates: start: 20140819, end: 20140821
  23. ALLEGRA [Concomitant]
     Active Substance: FEXOFENADINE HYDROCHLORIDE
     Indication: CELLULITIS
     Dosage: 60 MG, TID
     Route: 048
     Dates: start: 20140820, end: 20140820
  24. ACYCLOVIR CREAM [Concomitant]
     Indication: HERPES SIMPLEX
     Dosage: 1 UNK, BID
     Route: 061
     Dates: start: 20140820, end: 20140822
  25. DEMEROL [Concomitant]
     Active Substance: MEPERIDINE HYDROCHLORIDE
     Indication: CELLULITIS
     Dosage: 30 MG, PRN
     Route: 042
     Dates: start: 20140806, end: 20140808

REACTIONS (1)
  - Pancytopenia [Recovered/Resolved]

NARRATIVE: CASE EVENT DATE: 20140806
